FAERS Safety Report 6445737-8 (Version None)
Quarter: 2009Q4

REPORT INFORMATION
  Report Type: 
  Country: None (occurrence: None)
  Receive Date: 20091116
  Receipt Date: 20091103
  Transmission Date: 20100525
  Serious: Yes (Life-Threatening, Hospitalization)
  Sender: FDA-Public Use
  Company Number: 2009-04605

PATIENT
  Age: 56 Year
  Sex: Female

DRUGS (12)
  1. VELCADE [Suspect]
     Indication: MULTIPLE MYELOMA
     Dosage: 1.3 MG/M2, INTRAVENOUS
     Route: 042
     Dates: start: 20081118, end: 20081121
  2. TANESPIMYCIN (TANESPIMYCIN) [Suspect]
     Indication: MULTIPLE MYELOMA
     Dosage: 340 MG/M2, INTRAVENOUS
     Route: 042
     Dates: start: 20081118, end: 20081121
  3. SYNTHROID [Concomitant]
  4. SIMVASTATIN [Concomitant]
  5. PAROXETINE HCL [Concomitant]
  6. LISINOPRIL (LISINOPRL) [Concomitant]
  7. AROMASIN [Concomitant]
  8. CALCIUM WITH VITAMIN D (ERGOCALCIFEROL, CALCIUM PHOSPHATE) [Concomitant]
  9. VITAMIN D [Concomitant]
  10. FISH OIL (FISH OIL) [Concomitant]
  11. ASPIRIN [Concomitant]
  12. KYTRIL [Concomitant]

REACTIONS (9)
  - ALANINE AMINOTRANSFERASE INCREASED [None]
  - ASPARTATE AMINOTRANSFERASE INCREASED [None]
  - BLOOD ALKALINE PHOSPHATASE INCREASED [None]
  - BLOOD LACTATE DEHYDROGENASE INCREASED [None]
  - DEHYDRATION [None]
  - NAUSEA [None]
  - THROMBOCYTOPENIA [None]
  - TRANSAMINASES INCREASED [None]
  - VOMITING [None]
